FAERS Safety Report 5660708-7 (Version None)
Quarter: 2008Q1

REPORT INFORMATION
  Report Type: 
  Country: None (occurrence: None)
  Receive Date: 20080311
  Receipt Date: 20080229
  Transmission Date: 20080703
  Serious: Yes (Hospitalization)
  Sender: FDA-Public Use
  Company Number: US-ELI_LILLY_AND_COMPANY-US200711003150

PATIENT
  Sex: Female
  Weight: 82.54 kg

DRUGS (6)
  1. BYETTA [Suspect]
     Dosage: 5 MG, 2/D
     Route: 058
     Dates: start: 20070526, end: 20070624
  2. BYETTA [Suspect]
     Dosage: 10 UG, 2/D
     Route: 058
     Dates: start: 20070625
  3. GLUCOVANCE [Concomitant]
     Dosage: UNK, 2/D
  4. HYDROCODONE BITARTRATE [Concomitant]
     Indication: PAIN
     Dosage: UNK, AS NEEDED
  5. CYMBALTA [Concomitant]
     Indication: DEPRESSION
     Dosage: 20 MG, 2/D
  6. KEFLEX [Concomitant]
     Dates: start: 20071105

REACTIONS (9)
  - ASTHENIA [None]
  - CONSTIPATION [None]
  - DECREASED APPETITE [None]
  - FEELING HOT [None]
  - NAUSEA [None]
  - NEPHROLITHIASIS [None]
  - PALPITATIONS [None]
  - RECTAL HAEMORRHAGE [None]
  - WEIGHT INCREASED [None]
